FAERS Safety Report 17412851 (Version 2)
Quarter: 2020Q1

REPORT INFORMATION
  Report Type: Spontaneous
  Country: US (occurrence: US)
  Receive Date: 20200213
  Receipt Date: 20200224
  Transmission Date: 20200409
  Serious: No
  Sender: FDA-Public Use
  Company Number: US-TORRENT-00009665

PATIENT
  Sex: Female
  Weight: 47 kg

DRUGS (1)
  1. MONTELUKAST [Suspect]
     Active Substance: MONTELUKAST SODIUM
     Indication: SINUS DISORDER
     Dosage: ONE TABLET ONCE A DAY AT NIGHT
     Route: 048
     Dates: start: 202002

REACTIONS (1)
  - Product taste abnormal [Not Recovered/Not Resolved]
